FAERS Safety Report 6603975-5 (Version None)
Quarter: 2010Q1

REPORT INFORMATION
  Report Type: 
  Country: None (occurrence: None)
  Receive Date: 20100226
  Receipt Date: 20090413
  Transmission Date: 20100710
  Serious: No
  Sender: FDA-Public Use
  Company Number: A0776406A

PATIENT
  Age: 31 Year
  Sex: Female
  Weight: 106.8 kg

DRUGS (3)
  1. LAMICTAL CD [Suspect]
     Indication: BIPOLAR DISORDER
     Dosage: 25MG PER DAY
     Route: 048
     Dates: start: 20090323, end: 20090326
  2. ADDERALL 30 [Concomitant]
     Indication: ATTENTION DEFICIT/HYPERACTIVITY DISORDER
     Route: 048
     Dates: start: 20090126
  3. KLONOPIN [Concomitant]
     Indication: ANXIETY
     Dosage: .5MG UNKNOWN
     Route: 048
     Dates: start: 20080101

REACTIONS (6)
  - INFLUENZA LIKE ILLNESS [None]
  - MYALGIA [None]
  - ORAL PRURITUS [None]
  - RASH [None]
  - SUNBURN [None]
  - THROAT IRRITATION [None]
